FAERS Safety Report 21783855 (Version 3)
Quarter: 2022Q4

REPORT INFORMATION
  Report Type: Spontaneous
  Country: US (occurrence: US)
  Receive Date: 20221227
  Receipt Date: 20221228
  Transmission Date: 20230113
  Serious: No
  Sender: FDA-Public Use
  Company Number: US-PFIZER INC-202201391976

PATIENT
  Age: 68 Year
  Sex: Male

DRUGS (1)
  1. LEVOXYL [Suspect]
     Active Substance: LEVOTHYROXINE SODIUM
     Dosage: 175 UG
     Dates: start: 2009

REACTIONS (3)
  - Feeling cold [Not Recovered/Not Resolved]
  - Weight increased [Unknown]
  - Expired product administered [Unknown]
